FAERS Safety Report 4601590-6 (Version None)
Quarter: 2005Q1

REPORT INFORMATION
  Report Type: 
  Country: None (occurrence: None)
  Receive Date: 20050131
  Receipt Date: 20041117
  Transmission Date: 20050727
  Serious: No
  Sender: FDA-Public Use
  Company Number: 200418426US

PATIENT
  Age: 43 Year
  Sex: Female

DRUGS (9)
  1. TELITHROMYCIN (KETEK) TABLETS [Suspect]
     Indication: SINUSITIS
     Dosage: 800 MG QD PO
     Route: 048
     Dates: start: 20040909
  2. FLUOXETINE (SARAFEM) [Concomitant]
  3. SULFOGAIACOL [Concomitant]
  4. CODEINE PHOSPHATE [Concomitant]
  5. PROMETHAZINE HCL [Concomitant]
  6. CHLOROFORM [Concomitant]
  7. SODIUM CITRATE [Concomitant]
  8. CITRIC ACID [Concomitant]
  9. IPECACUANHA FLUID EXTRACT (PHENERGAN WITH CODEINE) [Concomitant]

REACTIONS (4)
  - BLISTER [None]
  - HYPERSENSITIVITY [None]
  - RASH [None]
  - URTICARIA [None]
